FAERS Safety Report 23600685 (Version 1)
Quarter: 2024Q1

REPORT INFORMATION
  Report Type: Spontaneous
  Country: US (occurrence: None)
  Receive Date: 20240305
  Receipt Date: 20240305
  Transmission Date: 20240410
  Serious: Yes (Hospitalization)
  Sender: FDA-Public Use
  Company Number: None

PATIENT
  Sex: Male

DRUGS (5)
  1. EPCLUSA [Suspect]
     Active Substance: SOFOSBUVIR\VELPATASVIR
     Indication: Hepatitis C
     Dosage: FREQUENCY : DAILY;?
     Route: 048
     Dates: start: 20240110
  2. METFORMIN [Concomitant]
  3. JARDIANCE [Concomitant]
  4. TAMSULOSIN [Concomitant]
  5. LACTULOSE SOLUTION [Concomitant]

REACTIONS (2)
  - Psychotic disorder [None]
  - Incoherent [None]
